FAERS Safety Report 6273015-9 (Version None)
Quarter: 2009Q3

REPORT INFORMATION
  Report Type: 
  Country: None (occurrence: None)
  Receive Date: 20090716
  Receipt Date: 20090716
  Transmission Date: 20100115
  Serious: Yes (Other)
  Sender: FDA-Public Use
  Company Number: None

PATIENT
  Age: 59 Year
  Sex: Male
  Weight: 106.8 kg

DRUGS (1)
  1. NIACIN [Suspect]
     Indication: HYPERLIPIDAEMIA
     Dosage: 1000 MG EVERY DAY PO
     Route: 048
     Dates: start: 20060618, end: 20060802

REACTIONS (4)
  - ACTINIC KERATOSIS [None]
  - ERYTHEMA [None]
  - FLUSHING [None]
  - HEADACHE [None]
